FAERS Safety Report 17168406 (Version 1)
Quarter: 2019Q4

REPORT INFORMATION
  Report Type: Spontaneous
  Country: US (occurrence: US)
  Receive Date: 20191218
  Receipt Date: 20191218
  Transmission Date: 20200122
  Serious: No
  Sender: FDA-Public Use
  Company Number: US-ASTRAZENECA-2019SF77989

PATIENT
  Age: 64 Year
  Sex: Female

DRUGS (1)
  1. ZOMIG [Suspect]
     Active Substance: ZOLMITRIPTAN
     Indication: MIGRAINE
     Dosage: 5MG, USE 1 SPRAY IN 1 NOSTRIL ONCE AT ONSET OF MIGRAINE. MAY REPEAT ONCE AFTER 2 HOURS IF NEEDED ...
     Route: 045

REACTIONS (2)
  - Product dose omission [Unknown]
  - Weight decreased [Unknown]

NARRATIVE: CASE EVENT DATE: 20191107
